FAERS Safety Report 20328951 (Version 2)
Quarter: 2022Q1

REPORT INFORMATION
  Report Type: Spontaneous
  Country: GB (occurrence: GB)
  Receive Date: 20220112
  Receipt Date: 20220112
  Transmission Date: 20220423
  Serious: Yes (Life-Threatening)
  Sender: FDA-Public Use
  Company Number: None

PATIENT
  Age: 60 Year
  Sex: Male

DRUGS (15)
  1. AMLODIPINE [Suspect]
     Active Substance: AMLODIPINE BESYLATE
     Indication: Hypertension
     Dosage: 10 MG, QD
     Route: 048
     Dates: start: 20210720
  2. MOXONIDINE [Suspect]
     Active Substance: MOXONIDINE
     Indication: Hypertension
     Dosage: 200 UG, BID
     Route: 048
     Dates: start: 20210720
  3. TACROLIMUS [Concomitant]
     Active Substance: TACROLIMUS
     Indication: Ill-defined disorder
     Dosage: UNK
     Route: 065
  4. ALENDRONIC ACID [Concomitant]
     Active Substance: ALENDRONIC ACID
     Indication: Ill-defined disorder
     Dosage: UNK
     Route: 065
  5. ALFACALCIDOL [Concomitant]
     Active Substance: ALFACALCIDOL
     Indication: Ill-defined disorder
     Dosage: UNK
     Route: 065
  6. BISOPROLOL [Concomitant]
     Active Substance: BISOPROLOL
     Indication: Ill-defined disorder
     Dosage: UNK
     Route: 065
  7. DOXAZOSIN [Concomitant]
     Active Substance: DOXAZOSIN MESYLATE
     Indication: Ill-defined disorder
     Dosage: UNK
     Route: 065
  8. LACTULOSE [Concomitant]
     Active Substance: LACTULOSE
     Indication: Ill-defined disorder
     Dosage: UNK (LIQUID)
     Route: 065
  9. LOPERAMIDE HYDROCHLORIDE [Concomitant]
     Active Substance: LOPERAMIDE HYDROCHLORIDE
     Indication: Ill-defined disorder
     Dosage: UNK
     Route: 065
  10. MIRTAZAPINE [Concomitant]
     Active Substance: MIRTAZAPINE
     Indication: Ill-defined disorder
     Dosage: UNK
     Route: 065
  11. OMEPRAZOLE SODIUM [Concomitant]
     Active Substance: OMEPRAZOLE SODIUM
     Indication: Ill-defined disorder
     Dosage: UNK
     Route: 065
  12. PREDNISOLONE [Concomitant]
     Active Substance: PREDNISOLONE
     Indication: Ill-defined disorder
     Dosage: UNK
     Route: 065
  13. OXYCODONE HYDROCHLORIDE [Concomitant]
     Active Substance: OXYCODONE HYDROCHLORIDE
     Indication: Ill-defined disorder
     Dosage: UNK
     Route: 065
  14. TIZANIDINE [Concomitant]
     Active Substance: TIZANIDINE
     Indication: Ill-defined disorder
     Dosage: UNK
     Route: 065
  15. ACETAMINOPHEN\CODEINE PHOSPHATE [Concomitant]
     Active Substance: ACETAMINOPHEN\CODEINE PHOSPHATE
     Indication: Ill-defined disorder
     Dosage: UNK
     Route: 065

REACTIONS (1)
  - Immune thrombocytopenia [Recovered/Resolved]

NARRATIVE: CASE EVENT DATE: 20211111
